FAERS Safety Report 8599486-0 (Version None)
Quarter: 2012Q3

REPORT INFORMATION
  Report Type: 
  Country: None (occurrence: None)
  Receive Date: 20120816
  Receipt Date: 20120508
  Transmission Date: 20120928
  Serious: No
  Sender: FDA-Public Use
  Company Number: US-ALLERGAN-1206582US

PATIENT
  Age: 33 Year
  Sex: Female

DRUGS (1)
  1. LASTACAFT [Suspect]
     Indication: EYE ALLERGY
     Route: 047

REACTIONS (4)
  - SKIN EXFOLIATION [None]
  - EYE DISCHARGE [None]
  - EYE SWELLING [None]
  - HYPERSENSITIVITY [None]
